FAERS Safety Report 20173464 (Version 1)
Quarter: 2021Q4

REPORT INFORMATION
  Report Type: Spontaneous
  Country: BG (occurrence: BG)
  Receive Date: 20211212
  Receipt Date: 20211212
  Transmission Date: 20220303
  Serious: Yes (Other)
  Sender: FDA-Public Use
  Company Number: BG-009507513-2112BGR001664

PATIENT
  Age: 68 Year

DRUGS (1)
  1. KEYTRUDA [Suspect]
     Active Substance: PEMBROLIZUMAB
     Indication: Lung adenocarcinoma
     Dosage: UNK

REACTIONS (3)
  - Tumour pseudoprogression [Unknown]
  - Hepatotoxicity [Recovering/Resolving]
  - Therapy partial responder [Unknown]
